FAERS Safety Report 13068012 (Version 1)
Quarter: 2016Q4

REPORT INFORMATION
  Report Type: Spontaneous
  Country: US (occurrence: US)
  Receive Date: 20161228
  Receipt Date: 20161228
  Transmission Date: 20170207
  Serious: Yes (Hospitalization)
  Sender: FDA-Public Use
  Company Number: US-AUROBINDO-AUR-APL-2015-07068

PATIENT
  Age: 87 Year
  Sex: Male

DRUGS (5)
  1. MINOCYCLINE [Suspect]
     Active Substance: MINOCYCLINE\MINOCYCLINE HYDROCHLORIDE
     Indication: PNEUMONIA
     Route: 065
  2. MINOCYCLINE [Suspect]
     Active Substance: MINOCYCLINE\MINOCYCLINE HYDROCHLORIDE
     Indication: URINARY TRACT INFECTION
  3. MINOCYCLINE [Suspect]
     Active Substance: MINOCYCLINE\MINOCYCLINE HYDROCHLORIDE
     Indication: ACNE
  4. MINOCYCLINE [Suspect]
     Active Substance: MINOCYCLINE\MINOCYCLINE HYDROCHLORIDE
     Indication: BRONCHITIS
  5. AMOXICILLIN CLAVULANIC ACID [Concomitant]
     Active Substance: AMOXICILLIN\CLAVULANIC ACID
     Route: 048

REACTIONS (9)
  - Tachypnoea [Recovered/Resolved]
  - Eosinophilic pneumonia acute [Recovered/Resolved]
  - Tachycardia [Recovered/Resolved]
  - Sepsis [Recovered/Resolved]
  - Arthralgia [Recovered/Resolved]
  - Acute kidney injury [Recovered/Resolved]
  - Bowel movement irregularity [Recovered/Resolved]
  - Hypotension [Recovered/Resolved]
  - Acute respiratory distress syndrome [Recovered/Resolved]
